FAERS Safety Report 4314780-7 (Version None)
Quarter: 2004Q1

REPORT INFORMATION
  Report Type: 
  Country: None (occurrence: None)
  Receive Date: 20040310
  Receipt Date: 20040127
  Transmission Date: 20041129
  Serious: Yes (Other)
  Sender: FDA-Public Use
  Company Number: 200412890GDDC

PATIENT
  Age: 58 Year
  Sex: Female

DRUGS (10)
  1. ARAVA [Suspect]
     Indication: RHEUMATOID ARTHRITIS
     Route: 048
     Dates: start: 20030116, end: 20030515
  2. PLAQUENIL [Concomitant]
     Route: 048
     Dates: start: 19990101
  3. FOLIC ACID [Concomitant]
     Route: 048
     Dates: start: 19990101
  4. MOBICOX [Concomitant]
     Route: 048
     Dates: start: 19990101
  5. ELAVIL [Concomitant]
     Route: 048
     Dates: start: 19990101
  6. METHOTREXATE [Concomitant]
     Route: 048
     Dates: start: 19990101
  7. ACTONEL [Concomitant]
     Route: 048
     Dates: start: 19990101
  8. CLONAZEPAM [Concomitant]
     Dosage: DOSE: UNK
     Route: 048
     Dates: start: 19990101
  9. FLUOXETINE [Concomitant]
     Dosage: DOSE: UNK
     Route: 048
     Dates: start: 19990101
  10. PERIDOL [Concomitant]
     Dosage: DOSE: UNK
     Route: 048
     Dates: start: 19990101

REACTIONS (1)
  - BLOOD ALKALINE PHOSPHATASE INCREASED [None]
